FAERS Safety Report 13558305 (Version 1)
Quarter: 2017Q2

REPORT INFORMATION
  Report Type: Report from Study
  Country: None (occurrence: GB)
  Receive Date: 20170518
  Receipt Date: 20170518
  Transmission Date: 20170830
  Serious: Yes (Other)
  Sender: FDA-Public Use
  Company Number: GB-ABBVIE-17K-167-1977664-00

PATIENT
  Age: 54 Year
  Sex: Female
  Weight: 74.3 kg

DRUGS (3)
  1. HUMIRA [Suspect]
     Active Substance: ADALIMUMAB
     Indication: PSORIASIS
     Route: 058
     Dates: start: 20090530
  2. ELLESTE SOLO [Concomitant]
     Active Substance: ESTRADIOL
     Indication: PRODUCT USED FOR UNKNOWN INDICATION
     Dates: start: 20090904
  3. PARACETAMOL [Concomitant]
     Active Substance: ACETAMINOPHEN
     Indication: PRODUCT USED FOR UNKNOWN INDICATION
     Dates: start: 20140113

REACTIONS (4)
  - Bone lesion [Unknown]
  - Bone neoplasm [Unknown]
  - Bone abscess [Unknown]
  - Arthralgia [Unknown]

NARRATIVE: CASE EVENT DATE: 201306
